FAERS Safety Report 5792743-2 (Version None)
Quarter: 2008Q2

REPORT INFORMATION
  Report Type: 
  Country: None (occurrence: None)
  Receive Date: 20080624
  Receipt Date: 20080610
  Transmission Date: 20081010
  Serious: Yes (Other)
  Sender: FDA-Public Use
  Company Number: 2008AL005322

PATIENT
  Age: 66 Year
  Sex: Male

DRUGS (5)
  1. DIGOXIN [Suspect]
     Indication: ATRIAL FIBRILLATION
     Dosage: 0.125MG,QD,PO
     Route: 048
     Dates: start: 20040101
  2. FLOMAX [Concomitant]
  3. ATENOLOL [Concomitant]
  4. LOVASTATIN [Concomitant]
  5. POTASSIUM CHLORIDE [Concomitant]

REACTIONS (5)
  - BLINDNESS TRANSIENT [None]
  - CONFUSIONAL STATE [None]
  - DIPLOPIA [None]
  - DIZZINESS [None]
  - PHARMACEUTICAL PRODUCT COMPLAINT [None]
